FAERS Safety Report 6391301-9 (Version None)
Quarter: 2009Q4

REPORT INFORMATION
  Report Type: 
  Country: None (occurrence: None)
  Receive Date: 20091006
  Receipt Date: 20091006
  Transmission Date: 20100525
  Serious: Yes (Life-Threatening, Hospitalization)
  Sender: FDA-Public Use
  Company Number: None

PATIENT
  Sex: Male

DRUGS (10)
  1. ZOLPIDEM [Suspect]
     Dosage: 5 - 10MG HS, PRN ONLY PO
     Route: 048
     Dates: start: 20090919, end: 20091001
  2. TRIAMTERENE AND HYDROCHLOROTHIAZIDE [Concomitant]
  3. PACERONE [Concomitant]
  4. WARFARIN SODIUM [Concomitant]
  5. AMOX/K CLAV [Concomitant]
  6. PLAVIX [Concomitant]
  7. RAMIPRIL [Concomitant]
  8. METOPROLOL [Concomitant]
  9. NITROSTAT [Concomitant]
  10. CARVEDILOL [Concomitant]

REACTIONS (5)
  - ABNORMAL SLEEP-RELATED EVENT [None]
  - AMNESIA [None]
  - HALLUCINATION [None]
  - INSOMNIA [None]
  - ROAD TRAFFIC ACCIDENT [None]
